FAERS Safety Report 11934400 (Version 1)
Quarter: 2016Q1

REPORT INFORMATION
  Report Type: Spontaneous
  Country: US (occurrence: None)
  Receive Date: 20160120
  Receipt Date: 20160120
  Transmission Date: 20160526
  Serious: No
  Sender: FDA-Public Use
  Company Number: None

PATIENT
  Age: 40 Year
  Sex: Female
  Weight: 88.91 kg

DRUGS (3)
  1. LEVOTHYROXINE. [Concomitant]
     Active Substance: LEVOTHYROXINE
  2. SULFMETH/TRIMETHOPRIM 800/160MG TB AMNEAL [Suspect]
     Active Substance: SULFAMETHOXAZOLE\TRIMETHOPRIM
     Indication: URINARY TRACT INFECTION
     Dosage: 1 PILL TWICE DAILY TAKEN BY MOUTH
     Route: 048
     Dates: start: 20160113, end: 20160115
  3. METFORMIN [Concomitant]
     Active Substance: METFORMIN HYDROCHLORIDE

REACTIONS (9)
  - Influenza [None]
  - Hyperhidrosis [None]
  - Headache [None]
  - Chills [None]
  - Hypersensitivity [None]
  - Pain in extremity [None]
  - Arthralgia [None]
  - Rash generalised [None]
  - Pyrexia [None]

NARRATIVE: CASE EVENT DATE: 20160114
